FAERS Safety Report 19258809 (Version 1)
Quarter: 2021Q2

REPORT INFORMATION
  Report Type: Spontaneous
  Country: US (occurrence: US)
  Receive Date: 20210514
  Receipt Date: 20210514
  Transmission Date: 20210717
  Serious: Yes (Other)
  Sender: FDA-Public Use
  Company Number: None

PATIENT
  Sex: Female
  Weight: 52.2 kg

DRUGS (5)
  1. WILATE ? VON WILLEBRAND FACTOR/COAGULATION FACTOR VIII COMPLEX (HUMAN) [Suspect]
     Active Substance: HUMAN COAGULATION FACTOR VIII/VON WILLEBRAND FACTOR COMPLEX
     Indication: VON WILLEBRAND^S DISEASE
     Route: 042
     Dates: start: 20210513, end: 20210513
  2. WILATE ? VON WILLEBRAND FACTOR/COAGULATION FACTOR VIII COMPLEX (HUMAN) [Suspect]
     Active Substance: HUMAN COAGULATION FACTOR VIII/VON WILLEBRAND FACTOR COMPLEX
     Indication: VON WILLEBRAND^S DISEASE
     Route: 042
     Dates: start: 20210513, end: 20210513
  3. WILATE 980 RCOF UNITS ? LOT M024A902V1; EXP 05/2024 [Concomitant]
     Dates: start: 20210513, end: 20210513
  4. WILATE 490 RCOF UNITS ? LOT M942A902V2; EXP 09/2023 [Concomitant]
     Dates: start: 20210513, end: 20210513
  5. WILATE 980 RCOF UNITS ? LOT M051A902V1; EXP 11/2024 [Concomitant]
     Dates: start: 20210513, end: 20210513

REACTIONS (7)
  - Infusion related reaction [None]
  - Heart rate increased [None]
  - Anxiety [None]
  - Dyspnoea [None]
  - Chest discomfort [None]
  - Flushing [None]
  - Headache [None]
